FAERS Safety Report 25787857 (Version 2)
Quarter: 2025Q3

REPORT INFORMATION
  Report Type: Spontaneous
  Country: EU (occurrence: EU)
  Receive Date: 20250910
  Receipt Date: 20250919
  Transmission Date: 20251021
  Serious: Yes (Life-Threatening)
  Sender: PFIZER
  Company Number: EU-PFIZER INC-PV202500107644

PATIENT
  Sex: Male

DRUGS (10)
  1. TIGECYCLINE [Suspect]
     Active Substance: TIGECYCLINE
  2. AVIBACTAM SODIUM\CEFTAZIDIME [Suspect]
     Active Substance: AVIBACTAM SODIUM\CEFTAZIDIME
  3. MEROPENEM [Suspect]
     Active Substance: MEROPENEM
  4. IMIPENEM AND CILASTATIN [Suspect]
     Active Substance: CILASTATIN SODIUM\IMIPENEM
  5. GENTAMICIN [Suspect]
     Active Substance: GENTAMICIN
  6. CIPROFLOXACIN [Suspect]
     Active Substance: CIPROFLOXACIN
  7. COLISTIN [Suspect]
     Active Substance: COLISTIN
     Route: 055
  8. COLISTIN [Suspect]
     Active Substance: COLISTIN
     Route: 051
  9. PIPERACILLIN SODIUM\TAZOBACTAM SODIUM [Suspect]
     Active Substance: PIPERACILLIN SODIUM\TAZOBACTAM SODIUM
  10. CEFTAZIDIME [Suspect]
     Active Substance: CEFTAZIDIME

REACTIONS (2)
  - Drug ineffective [Unknown]
  - Off label use [Unknown]
